FAERS Safety Report 4395207-6 (Version None)
Quarter: 2004Q3

REPORT INFORMATION
  Report Type: 
  Country: None (occurrence: None)
  Receive Date: 20040712
  Receipt Date: 20040309
  Transmission Date: 20050211
  Serious: Yes (Hospitalization, Disabling)
  Sender: FDA-Public Use
  Company Number: FR-MERCK-0403FRA00030

PATIENT
  Age: 63 Year
  Sex: Male
  Weight: 55 kg

DRUGS (4)
  1. BUDESONIDE [Concomitant]
     Route: 055
     Dates: start: 19980101
  2. BUDESONIDE [Concomitant]
     Route: 065
  3. SINGULAIR [Suspect]
     Indication: NASAL POLYPS
     Route: 048
     Dates: start: 20020319, end: 20030902
  4. SINGULAIR [Suspect]
     Indication: ASTHMA
     Route: 048
     Dates: start: 20020319, end: 20030902

REACTIONS (3)
  - ALLERGIC GRANULOMATOUS ANGIITIS [None]
  - CARDIOMYOPATHY [None]
  - LYMPHOMA [None]
